FAERS Safety Report 19874706 (Version 1)
Quarter: 2021Q3

REPORT INFORMATION
  Report Type: Spontaneous
  Country: GB (occurrence: GB)
  Receive Date: 20210923
  Receipt Date: 20210923
  Transmission Date: 20211014
  Serious: Yes (Other)
  Sender: FDA-Public Use
  Company Number: GB-MYLANLABS-2021M1064426

PATIENT
  Age: 21 Year
  Sex: Male
  Weight: 97 kg

DRUGS (2)
  1. CLARITHROMYCIN. [Suspect]
     Active Substance: CLARITHROMYCIN
     Indication: EAR INFECTION
     Dosage: 500 MILLIGRAM, BID
     Route: 048
     Dates: start: 20210917
  2. FLUOXETINE HYDROCHLORIDE. [Concomitant]
     Active Substance: FLUOXETINE HYDROCHLORIDE
     Indication: ILL-DEFINED DISORDER
     Dosage: UNK

REACTIONS (1)
  - Haematochezia [Unknown]

NARRATIVE: CASE EVENT DATE: 20210918
